FAERS Safety Report 9134862 (Version 2)
Quarter: 2013Q2

REPORT INFORMATION
  Report Type: Report from Study
  Country: JP (occurrence: JP)
  Receive Date: 20130304
  Receipt Date: 20130611
  Transmission Date: 20140414
  Serious: Yes (Hospitalization, Other)
  Sender: FDA-Public Use
  Company Number: JP-GENZYME-THYM-1003664

PATIENT
  Age: 1 Year
  Sex: Male
  Weight: 10 kg

DRUGS (8)
  1. THYMOGLOBULIN [Suspect]
     Indication: BONE MARROW CONDITIONING REGIMEN
     Dosage: 20 MG, QD
     Route: 065
     Dates: start: 20111110, end: 20111113
  2. HYDROXYZINE PAMOATE [Concomitant]
     Indication: PREMEDICATION
     Dosage: UNK
     Route: 065
     Dates: start: 20111110, end: 20111113
  3. CYCLOPHOSPHAMIDE [Concomitant]
     Indication: WISKOTT-ALDRICH SYNDROME
     Dosage: UNK
     Route: 065
     Dates: start: 20111110, end: 20111113
  4. MESNA [Concomitant]
     Indication: PROPHYLAXIS
     Dosage: UNK
     Route: 065
     Dates: start: 20111110, end: 20111113
  5. DALTEPARIN SODIUM [Concomitant]
     Indication: PROPHYLAXIS
     Dosage: UNK
     Route: 065
     Dates: start: 20111105, end: 20111214
  6. MICAFUNGIN SODIUM [Concomitant]
     Indication: INFECTION PROPHYLAXIS
     Dosage: UNK
     Route: 065
     Dates: start: 20111105, end: 20111208
  7. GRANISETRON HYDROCHLORIDE [Concomitant]
     Indication: PROPHYLAXIS OF NAUSEA AND VOMITING
     Dosage: UNK
     Route: 065
     Dates: start: 20111106, end: 20111113
  8. ACICLOVIR [Concomitant]
     Indication: INFECTION PROPHYLAXIS
     Dosage: UNK
     Route: 065
     Dates: start: 20111105, end: 20111206

REACTIONS (2)
  - Febrile neutropenia [Not Recovered/Not Resolved]
  - Acute graft versus host disease in skin [Not Recovered/Not Resolved]
